FAERS Safety Report 17550648 (Version 1)
Quarter: 2020Q1

REPORT INFORMATION
  Report Type: Spontaneous
  Country: US (occurrence: US)
  Receive Date: 20200309
  Receipt Date: 20200309
  Transmission Date: 20200409
  Serious: No
  Sender: FDA-Public Use
  Company Number: None

PATIENT
  Age: 54 Year
  Sex: Female

DRUGS (2)
  1. ATORVASTATIN [Concomitant]
     Active Substance: ATORVASTATIN
  2. SIROLIMUS 1MG TABLET [Suspect]
     Active Substance: SIROLIMUS
     Route: 048

REACTIONS (2)
  - Drug interaction [None]
  - Product use issue [None]

NARRATIVE: CASE EVENT DATE: 20200309
